FAERS Safety Report 11734029 (Version 1)
Quarter: 2015Q4

REPORT INFORMATION
  Report Type: Spontaneous
  Country: US (occurrence: None)
  Receive Date: 20151112
  Receipt Date: 20151112
  Transmission Date: 20160304
  Serious: No
  Sender: FDA-Public Use
  Company Number: None

PATIENT
  Age: 77 Year
  Sex: Male

DRUGS (11)
  1. ACYCLOVIR. [Concomitant]
     Active Substance: ACYCLOVIR
  2. GABAPENTIN. [Concomitant]
     Active Substance: GABAPENTIN
  3. CARFILZOMIB [Concomitant]
     Active Substance: CARFILZOMIB
  4. OXYBUTYNIN [Concomitant]
     Active Substance: OXYBUTYNIN
  5. ASPIRIN. [Concomitant]
     Active Substance: ASPIRIN
  6. REVLIMID [Suspect]
     Active Substance: LENALIDOMIDE
     Indication: PLASMA CELL MYELOMA
     Route: 048
     Dates: start: 20150617, end: 20151102
  7. MVI [Concomitant]
     Active Substance: VITAMINS
  8. AREDIA [Concomitant]
     Active Substance: PAMIDRONATE DISODIUM
  9. PRAVASTATIN [Concomitant]
     Active Substance: PRAVASTATIN\PRAVASTATIN SODIUM
  10. METOPROLOL [Concomitant]
     Active Substance: METOPROLOL
  11. OMEPRAZOLE. [Concomitant]
     Active Substance: OMEPRAZOLE

REACTIONS (3)
  - Dyspepsia [None]
  - Deep vein thrombosis [None]
  - Chest pain [None]

NARRATIVE: CASE EVENT DATE: 20151102
